FAERS Safety Report 10578977 (Version 2)
Quarter: 2015Q1

REPORT INFORMATION
  Report Type: Spontaneous
  Country: US (occurrence: US)
  Receive Date: 20141112
  Receipt Date: 20150122
  Transmission Date: 20150720
  Serious: No
  Sender: FDA-Public Use
  Company Number: US-PFIZER INC-2014309927

PATIENT
  Age: 67 Year
  Sex: Male

DRUGS (1)
  1. XELJANZ [Suspect]
     Active Substance: TOFACITINIB CITRATE
     Indication: RHEUMATOID ARTHRITIS
     Dosage: 5 MG, 2X/DAY
     Route: 048
     Dates: start: 20140125

REACTIONS (5)
  - Pyrexia [Unknown]
  - Pain in extremity [Unknown]
  - Blister [Unknown]
  - Bronchitis [Unknown]
  - Gastrointestinal disorder [Unknown]
